FAERS Safety Report 5228966-0 (Version None)
Quarter: 2007Q1

REPORT INFORMATION
  Report Type: 
  Country: None (occurrence: None)
  Receive Date: 20061201
  Receipt Date: 20061009
  Transmission Date: 20070707
  Serious: No
  Sender: FDA-Public Use
  Company Number: US200610001417

PATIENT
  Age: 27 Year
  Sex: Female
  Weight: 55.3 kg

DRUGS (6)
  1. CYMBALTA [Suspect]
     Indication: DEPRESSION
     Dosage: SEE IMAGE
     Dates: start: 20060601, end: 20060101
  2. CYMBALTA [Suspect]
     Indication: DEPRESSION
     Dosage: SEE IMAGE
     Dates: start: 20060101, end: 20061004
  3. CYMBALTA [Suspect]
     Indication: DEPRESSION
     Dosage: SEE IMAGE
     Dates: start: 20061005, end: 20061005
  4. CYMBALTA [Suspect]
     Indication: DEPRESSION
     Dosage: SEE IMAGE
     Dates: start: 20061006, end: 20061006
  5. TOPAMAX /AUS/ (TOPIRAMATE) [Concomitant]
  6. FLUOXETINE [Concomitant]

REACTIONS (14)
  - AKATHISIA [None]
  - CRYING [None]
  - DIZZINESS [None]
  - DRUG INEFFECTIVE [None]
  - DYSTONIA [None]
  - EXTRAPYRAMIDAL DISORDER [None]
  - INSOMNIA [None]
  - MORBID THOUGHTS [None]
  - MUSCLE CONTRACTURE [None]
  - MUSCLE SPASMS [None]
  - PAIN IN EXTREMITY [None]
  - SUICIDAL IDEATION [None]
  - TOURETTE'S DISORDER [None]
  - VERTIGO [None]
